FAERS Safety Report 8151684-6 (Version None)
Quarter: 2012Q1

REPORT INFORMATION
  Report Type: 
  Country: None (occurrence: None)
  Receive Date: 20120221
  Receipt Date: 20120208
  Transmission Date: 20120608
  Serious: Yes (Other)
  Sender: FDA-Public Use
  Company Number: FR-AMGEN-FRASP2012009354

PATIENT
  Age: 15 Year
  Sex: Female

DRUGS (3)
  1. NSAID'S [Concomitant]
  2. ENBREL [Suspect]
     Dosage: UNK
     Dates: start: 20090101
  3. METHOTREXATE [Concomitant]
     Dosage: UNK
     Dates: start: 20070101

REACTIONS (7)
  - AUTOANTIBODY POSITIVE [None]
  - NECK PAIN [None]
  - LOCAL SWELLING [None]
  - MYALGIA [None]
  - MUSCULAR WEAKNESS [None]
  - MYOSITIS [None]
  - PYREXIA [None]
